FAERS Safety Report 20236105 (Version 1)
Quarter: 2021Q4

REPORT INFORMATION
  Report Type: Spontaneous
  Country: US (occurrence: US)
  Receive Date: 20211228
  Receipt Date: 20211228
  Transmission Date: 20220303
  Serious: No
  Sender: FDA-Public Use
  Company Number: US-AUROBINDO-AUR-APL-2021-003888

PATIENT
  Age: 72 Year
  Sex: Male
  Weight: 140.5 kg

DRUGS (2)
  1. BUPIVACAINE HYDROCHLORIDE [Suspect]
     Active Substance: BUPIVACAINE HYDROCHLORIDE
     Indication: Back disorder
     Dosage: 06 MILLILITER, EVERY WEEK, 3 TIMES A WEEKS AS 02 AND A HALF CC INJECTION
     Route: 065
     Dates: start: 202006, end: 20210120
  2. BUPIVACAINE HYDROCHLORIDE [Suspect]
     Active Substance: BUPIVACAINE HYDROCHLORIDE
     Indication: Sciatica
     Dosage: 0.25 PERCENT, AS CAUDAL INJECTION
     Route: 065

REACTIONS (5)
  - Urticaria [Recovered/Resolved]
  - Pruritus [Recovered/Resolved]
  - Rash [Recovered/Resolved]
  - Skin irritation [Recovered/Resolved]
  - Discomfort [Recovered/Resolved]

NARRATIVE: CASE EVENT DATE: 20201201
